FAERS Safety Report 22710686 (Version 13)
Quarter: 2024Q1

REPORT INFORMATION
  Report Type: Spontaneous
  Country: US (occurrence: US)
  Receive Date: 20230717
  Receipt Date: 20240320
  Transmission Date: 20240410
  Serious: Yes (Hospitalization)
  Sender: FDA-Public Use
  Company Number: US-Accord-367624

PATIENT
  Age: 59 Year
  Sex: Male
  Weight: 87.2 kg

DRUGS (34)
  1. CARBOPLATIN [Suspect]
     Active Substance: CARBOPLATIN
     Indication: Squamous cell carcinoma of head and neck
     Dosage: AUC 5, 1Q3W, INTRAVENOUS
     Route: 042
     Dates: start: 20230615, end: 20230615
  2. FLUOROURACIL [Suspect]
     Active Substance: FLUOROURACIL
     Indication: Squamous cell carcinoma of head and neck
     Dosage: DAILY FOR 4 DAYS, 1Q3W, INTRAVENOUS
     Route: 042
     Dates: start: 20230615, end: 20230619
  3. PEMBROLIZUMAB [Concomitant]
     Active Substance: PEMBROLIZUMAB
     Indication: Squamous cell carcinoma of head and neck
     Dosage: 200 MILLIGRAM, 1Q3W, INTRAVRNOUS
     Route: 042
     Dates: start: 20230615, end: 20230706
  4. ASPIRIN [Concomitant]
     Active Substance: ASPIRIN
     Dates: start: 20220401, end: 20230615
  5. LOSARTAN [Concomitant]
     Active Substance: LOSARTAN
     Dates: start: 20140801
  6. ATORVASTATIN [Concomitant]
     Active Substance: ATORVASTATIN
     Dates: start: 20140801
  7. HERBALS [Concomitant]
     Active Substance: HERBALS
     Dates: start: 20140801
  8. PANTOPRAZOLE [Concomitant]
     Active Substance: PANTOPRAZOLE
     Dates: start: 20220401
  9. DIPHENHYDRAMINE [Concomitant]
     Active Substance: DIPHENHYDRAMINE
     Dates: start: 20200501
  10. LORATADINE [Concomitant]
     Active Substance: LORATADINE
     Dates: start: 20000401
  11. BISACODYL [Concomitant]
     Active Substance: BISACODYL
     Dates: start: 20230617
  12. PALONOSETRON HYDROCHLORIDE [Concomitant]
     Active Substance: PALONOSETRON HYDROCHLORIDE
     Dates: start: 20230615
  13. DEXAMETHASONE [Concomitant]
     Active Substance: DEXAMETHASONE
     Dates: start: 20230615
  14. FAMOTIDINE [Concomitant]
     Active Substance: FAMOTIDINE
     Dates: start: 20230615
  15. LACTULOSE [Concomitant]
     Active Substance: LACTULOSE
     Dates: start: 20230618
  16. DIFLUCAN [Concomitant]
     Active Substance: FLUCONAZOLE
     Indication: Prophylaxis
     Dates: start: 20230613
  17. AMOXICILLIN [Concomitant]
     Active Substance: AMOXICILLIN
     Indication: Sleep apnoea syndrome
     Dates: start: 20230629, end: 20230713
  18. CLAVULANATE POTASSIUM [Concomitant]
     Active Substance: CLAVULANATE POTASSIUM
     Indication: Sleep apnoea syndrome
     Dates: start: 20230629, end: 20230713
  19. ITRACONAZOLE [Concomitant]
     Active Substance: ITRACONAZOLE
     Dates: start: 20230619
  20. HYDROCORTISONE [Concomitant]
     Active Substance: HYDROCORTISONE
     Dates: start: 20230620, end: 20230623
  21. SODIUM CHLORIDE [Concomitant]
     Active Substance: SODIUM CHLORIDE
     Dates: start: 20230620, end: 20230620
  22. PROTEINS NOS W/VITAMINS NOS [Concomitant]
     Dates: start: 20230624
  23. ACETAMINOPHEN [Concomitant]
     Active Substance: ACETAMINOPHEN
     Dates: start: 20230619, end: 20230620
  24. BETAMETHASONE CLOTRIMAZOLE [Concomitant]
     Active Substance: BETAMETHASONE DIPROPIONATE\CLOTRIMAZOLE
     Dates: start: 20230620, end: 20230702
  25. KETOCONAZOLE [Concomitant]
     Active Substance: KETOCONAZOLE
     Dates: start: 20230810, end: 20230815
  26. FLUCONAZOLE [Concomitant]
     Active Substance: FLUCONAZOLE
     Dates: start: 20230812, end: 20230815
  27. CEFTRIAXONE [Concomitant]
     Active Substance: CEFTRIAXONE\CEFTRIAXONE SODIUM
     Dates: start: 20230812, end: 20230815
  28. PEGFILGRASTIM [Concomitant]
     Active Substance: PEGFILGRASTIM
     Dates: start: 20230711, end: 20230815
  29. FILGRASTIM [Concomitant]
     Active Substance: FILGRASTIM
     Dates: start: 20230906
  30. VALACYCLOVIR HYDROCHLORIDE [Concomitant]
     Active Substance: VALACYCLOVIR HYDROCHLORIDE
     Dates: start: 20231020
  31. FLUOROURACIL [Suspect]
     Active Substance: FLUOROURACIL
     Indication: Squamous cell carcinoma of head and neck
     Dosage: QD, INTRAVENOUS
     Route: 042
     Dates: start: 20230803, end: 20230807
  32. CARBOPLATIN [Suspect]
     Active Substance: CARBOPLATIN
     Indication: Squamous cell carcinoma of head and neck
     Dosage: AUC 3, 1Q3W, INTRAVENOUS
     Route: 042
     Dates: start: 20230706
  33. FLUOROURACIL [Suspect]
     Active Substance: FLUOROURACIL
     Indication: Squamous cell carcinoma of head and neck
     Dosage: QD, INTRAVENOUS
     Route: 042
     Dates: start: 20230706, end: 20230710
  34. KETOCONAZOLE [Concomitant]
     Active Substance: KETOCONAZOLE
     Dates: start: 20231013, end: 20231013

REACTIONS (1)
  - Oral candidiasis [Recovered/Resolved]

NARRATIVE: CASE EVENT DATE: 20230617
